FAERS Safety Report 10203460 (Version 1)
Quarter: 2014Q2

REPORT INFORMATION
  Report Type: Spontaneous
  Country: CA (occurrence: None)
  Receive Date: 20140523
  Receipt Date: 20140523
  Transmission Date: 20141212
  Serious: Yes (Life-Threatening)
  Sender: FDA-Public Use
  Company Number: 2014000147

PATIENT
  Age: 62 Year
  Sex: Male
  Weight: 93 kg

DRUGS (12)
  1. ACEON (PERINDOPRIL ERBUMINE) TABLET, 8MG [Suspect]
     Indication: PRODUCT USED FOR UNKNOWN INDICATION
     Route: 048
  2. PRAVACHOL (PRAVASTATIN SODIUM) [Concomitant]
  3. SYNTHROID (LEVOTHYROXINE SODIUM) [Concomitant]
  4. HYDROCHLOROTHIAZIDE (HYDROCHLOROTHIAZIDE) [Concomitant]
  5. ADALAT XL (NIFEDIPINE) [Concomitant]
  6. ASAPHEN (ACETYLSALICYLIC ACID) [Concomitant]
  7. GLUCOPHAGE (METFORMIN HYDROCHLORIDE) [Concomitant]
  8. FLOVENT (FLUTICASONE PROPIONATE) [Concomitant]
  9. NASONEX (MOMETASONE FUROATE) [Concomitant]
  10. VENTOLIN HFA (SALBUTAMOL SULFATE) [Concomitant]
  11. CIALIS (TADALAFIL) [Concomitant]
  12. PARACETAMOL (PARACETAMOL) [Concomitant]

REACTIONS (6)
  - Pruritus [None]
  - Erythema [None]
  - Pharyngeal oedema [None]
  - Swollen tongue [None]
  - Lip swelling [None]
  - Pain in extremity [None]
